FAERS Safety Report 6310055-5 (Version None)
Quarter: 2009Q3

REPORT INFORMATION
  Report Type: 
  Country: None (occurrence: None)
  Receive Date: 20090814
  Receipt Date: 20090804
  Transmission Date: 20100115
  Serious: Yes (Other)
  Sender: FDA-Public Use
  Company Number: US-BAYER-200912752BCC

PATIENT
  Age: 85 Year
  Sex: Female
  Weight: 55 kg

DRUGS (11)
  1. BAYER EXTRA STRENGTH ASPIRIN BACK + BODY PAIN [Suspect]
     Indication: ARTHRALGIA
     Dosage: TOTAL DAILY DOSE: 2 DF
     Route: 048
     Dates: start: 20090801, end: 20090803
  2. ATACAND [Concomitant]
     Route: 065
  3. AMLODIPINE BESYLATE AND BENAZEPRIL HCL [Concomitant]
     Route: 065
  4. ENABLEX [Concomitant]
     Route: 065
  5. HYDROCHLOROTHIAZIDE [Concomitant]
     Route: 065
  6. ASPIRIN [Concomitant]
     Route: 048
  7. REGIMEN BAYER ASPIRIN [Concomitant]
     Route: 048
  8. ZYRTEC [Concomitant]
     Route: 065
  9. ENTERIC COATED BAYER ASPIRIN [Concomitant]
     Route: 065
  10. POLYETHYLENE GLYCOL [Concomitant]
     Indication: LAXATIVE SUPPORTIVE CARE
     Route: 065
     Dates: start: 20090802
  11. AMBIEN [Concomitant]
     Route: 065

REACTIONS (6)
  - ABDOMINAL DISTENSION [None]
  - ABDOMINAL PAIN UPPER [None]
  - CONSTIPATION [None]
  - FLATULENCE [None]
  - MASS [None]
  - RENAL FAILURE [None]
